FAERS Safety Report 11328175 (Version 2)
Quarter: 2015Q3

REPORT INFORMATION
  Report Type: Spontaneous
  Country: CA (occurrence: CA)
  Receive Date: 20150731
  Receipt Date: 20150917
  Transmission Date: 20151125
  Serious: Yes (Death)
  Sender: FDA-Public Use
  Company Number: CA-SA-2015SA110682

PATIENT
  Age: 36 Year
  Sex: Female

DRUGS (5)
  1. PENICILLIN [Concomitant]
     Active Substance: PENICILLIN
  2. TAXOTERE [Suspect]
     Active Substance: DOCETAXEL
     Indication: PRODUCT USED FOR UNKNOWN INDICATION
     Dosage: FORM: SOLUTION INTRAVENOUS
     Route: 065
  3. TRASTUZUMAB [Suspect]
     Active Substance: TRASTUZUMAB
     Indication: PRODUCT USED FOR UNKNOWN INDICATION
     Route: 042
  4. TAMOXIFEN [Suspect]
     Active Substance: TAMOXIFEN
     Indication: PRODUCT USED FOR UNKNOWN INDICATION
     Route: 065
  5. KADCYLA [Suspect]
     Active Substance: ADO-TRASTUZUMAB EMTANSINE
     Indication: PRODUCT USED FOR UNKNOWN INDICATION
     Dosage: FORM: POWDER FOR SOLUTION INTRAVENOUS
     Route: 042

REACTIONS (5)
  - Mobility decreased [Fatal]
  - Muscle spasms [Fatal]
  - Pain [Fatal]
  - Pharyngitis streptococcal [Fatal]
  - Malignant neoplasm progression [Fatal]
